APPROVED DRUG PRODUCT: TRAMADOL HYDROCHLORIDE
Active Ingredient: TRAMADOL HYDROCHLORIDE
Strength: 100MG
Dosage Form/Route: TABLET, EXTENDED RELEASE;ORAL
Application: A078783 | Product #001
Applicant: STRIDES PHARMA INTERNATIONAL AG
Approved: Nov 13, 2009 | RLD: No | RS: No | Type: DISCN